FAERS Safety Report 6611994-8 (Version None)
Quarter: 2010Q1

REPORT INFORMATION
  Report Type: 
  Country: None (occurrence: None)
  Receive Date: 20100303
  Receipt Date: 20100222
  Transmission Date: 20100710
  Serious: Yes (Hospitalization, Disabling)
  Sender: FDA-Public Use
  Company Number: GXKR2008KR08361

PATIENT
  Age: 66 Year
  Sex: Female

DRUGS (3)
  1. CEFAZOLIN (NGX) [Suspect]
     Indication: PROPHYLAXIS
     Dosage: 500 MG, ONCE/SINGLE
     Route: 037
  2. ANTIBIOTICS [Concomitant]
     Route: 037
  3. OMNIPAQUE 140 [Concomitant]
     Route: 037

REACTIONS (18)
  - APHONIA [None]
  - COGNITIVE DISORDER [None]
  - COMMUNICATION DISORDER [None]
  - DISTURBANCE IN ATTENTION [None]
  - DYSARTHRIA [None]
  - DYSPHAGIA [None]
  - DYSPHONIA [None]
  - DYSSTASIA [None]
  - GAIT DISTURBANCE [None]
  - HYPOREFLEXIA [None]
  - MECHANICAL VENTILATION [None]
  - MEMORY IMPAIRMENT [None]
  - OCCUPATIONAL THERAPY [None]
  - PHYSIOTHERAPY [None]
  - SPEECH REHABILITATION [None]
  - STATUS EPILEPTICUS [None]
  - TONGUE PARALYSIS [None]
  - UPPER MOTOR NEURONE LESION [None]
